FAERS Safety Report 10117507 (Version 1)
Quarter: 2014Q2

REPORT INFORMATION
  Report Type: Spontaneous
  Country: US (occurrence: US)
  Receive Date: 20140425
  Receipt Date: 20140425
  Transmission Date: 20141212
  Serious: No
  Sender: FDA-Public Use
  Company Number: US-GILEAD-2013-0073791

PATIENT
  Age: 41 Year
  Sex: Female

DRUGS (24)
  1. ATRIPLA [Suspect]
     Indication: HIV INFECTION
     Dosage: UNK
     Dates: start: 20130227
  2. PHENERGAN                          /00033001/ [Concomitant]
  3. CODEINE [Concomitant]
  4. PAROXETINE [Concomitant]
  5. OMEPRAZOLE [Concomitant]
  6. BECLOMETHASONE                     /00212602/ [Concomitant]
  7. BACLOFEN [Concomitant]
  8. ESTROGEN NOS [Concomitant]
  9. ATORVASTATIN [Concomitant]
     Dosage: 10 MG, UNK
  10. IBUPROFEN [Concomitant]
  11. NAPROXEN [Concomitant]
  12. ALBUTEROL                          /00139501/ [Concomitant]
  13. ALLOPURINOL [Concomitant]
  14. ASPIRIN [Concomitant]
  15. ONDANSETRON [Concomitant]
  16. METOPROLOL [Concomitant]
  17. CETRIZINE [Concomitant]
  18. LISINOPRIL [Concomitant]
  19. CLOTRIMAZOLE [Concomitant]
  20. LORATADINE [Concomitant]
  21. METFORMIN [Concomitant]
  22. RAMIPRIL [Concomitant]
  23. LORAZEPAM [Concomitant]
  24. AZITHROMYCIN [Concomitant]

REACTIONS (1)
  - Rash [Unknown]
